FAERS Safety Report 6106537-1 (Version None)
Quarter: 2009Q1

REPORT INFORMATION
  Report Type: 
  Country: None (occurrence: None)
  Receive Date: 20090304
  Receipt Date: 20090219
  Transmission Date: 20090719
  Serious: Yes (Hospitalization)
  Sender: FDA-Public Use
  Company Number: US025357

PATIENT
  Age: 30 Year
  Sex: Male
  Weight: 73.4827 kg

DRUGS (5)
  1. ACTIQ [Suspect]
     Indication: ABDOMINAL PAIN UPPER
     Dosage: 800 UG BID BUCCAL
     Route: 002
     Dates: start: 20080201, end: 20090123
  2. DURAGESIC-100 [Concomitant]
  3. LYRICA [Concomitant]
  4. LEVEMIR [Concomitant]
  5. NOVOLOG [Concomitant]

REACTIONS (1)
  - NO ADVERSE EVENT [None]
